FAERS Safety Report 12890195 (Version 1)
Quarter: 2016Q4

REPORT INFORMATION
  Report Type: Spontaneous
  Country: US (occurrence: US)
  Receive Date: 20161027
  Receipt Date: 20161027
  Transmission Date: 20170207
  Serious: Yes (Other)
  Sender: FDA-Public Use
  Company Number: US-LPDUSPRD-20160943

PATIENT
  Age: 63 Year
  Sex: Female

DRUGS (8)
  1. NEOSTIGMINE METHYLSULFATE INJECTION, USP (0033-10) [Suspect]
     Active Substance: NEOSTIGMINE METHYLSULFATE
     Dosage: 5 MG
     Route: 065
  2. ONDANSETRON INJECTION (4420-01) [Concomitant]
     Active Substance: ONDANSETRON
     Dosage: 4 MG
     Route: 065
  3. MIDAZOLAM [Concomitant]
     Active Substance: MIDAZOLAM\MIDAZOLAM HYDROCHLORIDE
     Dosage: 1 MG
     Route: 065
  4. SUCCINYLCHOLINE [Suspect]
     Active Substance: SUCCINYLCHOLINE
     Dosage: 80 MG
     Route: 065
  5. FENTANYL. [Concomitant]
     Active Substance: FENTANYL
     Dosage: 100 UG
     Route: 065
  6. PROPOFOL. [Concomitant]
     Active Substance: PROPOFOL
     Dosage: 120 MG
     Route: 065
  7. ROCURONIUM [Concomitant]
     Active Substance: ROCURONIUM BROMIDE
     Dosage: 50 MG
     Route: 065
  8. GLYCOPYRROLATE INJECTION, USP (4601-25) [Concomitant]
     Dosage: 1.2 MG
     Route: 065

REACTIONS (9)
  - Neuromuscular block prolonged [Unknown]
  - Drug interaction [Unknown]
  - Hypophosphataemia [None]
  - Hypomagnesaemia [None]
  - Oxygen saturation decreased [Unknown]
  - Hypokalaemia [None]
  - Dyspnoea [Unknown]
  - Hypothermia [Unknown]
  - Blood albumin decreased [None]
